FAERS Safety Report 21024044 (Version 4)
Quarter: 2022Q3

REPORT INFORMATION
  Report Type: Spontaneous
  Country: US (occurrence: US)
  Receive Date: 20220629
  Receipt Date: 20220909
  Transmission Date: 20221027
  Serious: Yes (Hospitalization, Other)
  Sender: FDA-Public Use
  Company Number: US-HORIZON THERAPEUTICS-HZN-2022-004666

PATIENT

DRUGS (2)
  1. PROCYSBI [Suspect]
     Active Substance: CYSTEAMINE BITARTRATE
     Indication: Cystinosis
     Dosage: UNK
     Route: 065
     Dates: start: 201602
  2. UNSPECIFIED INGREDIENT [Concomitant]
     Active Substance: UNSPECIFIED INGREDIENT

REACTIONS (9)
  - Salmonella bacteraemia [Unknown]
  - Colitis ulcerative [Recovered/Resolved]
  - Thrombotic microangiopathy [Unknown]
  - Splenomegaly [Unknown]
  - Portal vein pressure increased [Unknown]
  - Weight increased [Unknown]
  - Haemorrhage [Unknown]
  - Cholecystitis acute [Unknown]
  - Inflammatory bowel disease [Unknown]

NARRATIVE: CASE EVENT DATE: 20180101
